FAERS Safety Report 8050455-9 (Version None)
Quarter: 2012Q1

REPORT INFORMATION
  Report Type: 
  Country: None (occurrence: None)
  Receive Date: 20120111
  Receipt Date: 20110103
  Transmission Date: 20120608
  Serious: No
  Sender: FDA-Public Use
  Company Number: AEUSA201100001

PATIENT

DRUGS (1)
  1. PLASBUMIN 25% (25 PCT) [Suspect]
     Indication: PRODUCT USED FOR UNKNOWN INDICATION
     Dosage: 1X;OPH
     Route: 047
     Dates: start: 20101201, end: 20101201

REACTIONS (3)
  - ACCIDENTAL EXPOSURE [None]
  - NO ADVERSE EVENT [None]
  - PRODUCT QUALITY ISSUE [None]
